FAERS Safety Report 7754695-5 (Version None)
Quarter: 2011Q3

REPORT INFORMATION
  Report Type: 
  Country: None (occurrence: None)
  Receive Date: 20110915
  Receipt Date: 20110909
  Transmission Date: 20111222
  Serious: Yes (Hospitalization)
  Sender: FDA-Public Use
  Company Number: US-GENENTECH-323392

PATIENT
  Sex: Female
  Weight: 113.38 kg

DRUGS (5)
  1. RANIBIZUMAB [Suspect]
     Indication: IRIS NEOVASCULARISATION
     Dosage: 0.5 MG, 1/MONTH
     Route: 031
     Dates: start: 20100113
  2. RANIBIZUMAB [Suspect]
     Indication: DIABETIC RETINOPATHY
     Dosage: 0.5 MG, 3/MONTH
     Route: 031
     Dates: start: 20091211
  3. RANIBIZUMAB [Suspect]
     Dosage: 0.5 MG, 1/MONTH
     Route: 031
     Dates: start: 20100209
  4. CONCOMITANT UNSPECIFIED DRUG [Concomitant]
     Indication: CHOLESTEROSIS
     Route: 048
  5. CONCOMITANT UNSPECIFIED DRUG [Concomitant]
     Indication: DIABETES MELLITUS
     Route: 048

REACTIONS (1)
  - GASTRITIS [None]
